FAERS Safety Report 5638840-3 (Version None)
Quarter: 2008Q1

REPORT INFORMATION
  Report Type: 
  Country: None (occurrence: None)
  Receive Date: 20080226
  Receipt Date: 20080215
  Transmission Date: 20080703
  Serious: Yes (Other)
  Sender: FDA-Public Use
  Company Number: US-MERCK-0712USA03820

PATIENT
  Age: 85 Year
  Sex: Female
  Weight: 57 kg

DRUGS (2)
  1. FOSAMAX [Suspect]
     Indication: OSTEOPOROSIS
     Route: 048
     Dates: start: 19970101, end: 20061227
  2. [THERAPY UNSPECIFIED] [Concomitant]
     Indication: HYPERTENSION
     Route: 065

REACTIONS (19)
  - AORTIC DILATATION [None]
  - ARTERIOSCLEROSIS [None]
  - ASTHMA [None]
  - BRONCHITIS [None]
  - CAROTID ARTERY STENOSIS [None]
  - CHRONIC OBSTRUCTIVE PULMONARY DISEASE [None]
  - CORONARY ARTERY DISEASE [None]
  - DENTAL CARIES [None]
  - EMPHYSEMA [None]
  - GRANULOMA [None]
  - HYPERTENSION [None]
  - LUMBAR VERTEBRAL FRACTURE [None]
  - MYELOPATHY [None]
  - NEPHROLITHIASIS [None]
  - OEDEMA [None]
  - OSTEOMYELITIS [None]
  - OSTEONECROSIS [None]
  - RENAL FAILURE [None]
  - WEIGHT DECREASED [None]
